FAERS Safety Report 23292393 (Version 1)
Quarter: 2023Q4

REPORT INFORMATION
  Report Type: Spontaneous
  Country: None (occurrence: US)
  Receive Date: 20231213
  Receipt Date: 20231213
  Transmission Date: 20240109
  Serious: Yes (Other)
  Sender: FDA-Public Use
  Company Number: US-Harrow Eye-2149267

PATIENT
  Sex: Female
  Weight: 46.7 kg

DRUGS (5)
  1. AZITHROMYCIN [Suspect]
     Active Substance: AZITHROMYCIN
     Indication: Mycobacterial infection
     Dates: start: 20221108, end: 20230228
  2. MOXIFLOXACIN [Suspect]
     Active Substance: MOXIFLOXACIN
     Dates: start: 20221220, end: 20230228
  3. ETHAMBUTOL [Suspect]
     Active Substance: ETHAMBUTOL HYDROCHLORIDE
     Dates: start: 20221108, end: 20230228
  4. RIFAMPIN [Suspect]
     Active Substance: RIFAMPIN
     Dates: start: 20221108, end: 20230228
  5. AMIKACIN [Suspect]
     Active Substance: AMIKACIN
     Route: 042
     Dates: end: 20230228

REACTIONS (1)
  - Mycobacterium avium complex infection [Not Recovered/Not Resolved]
